FAERS Safety Report 7905305-5 (Version None)
Quarter: 2011Q4

REPORT INFORMATION
  Report Type: 
  Country: None (occurrence: None)
  Receive Date: 20111109
  Receipt Date: 20101118
  Transmission Date: 20120403
  Serious: Yes (Other)
  Sender: FDA-Public Use
  Company Number: PHHY2010HR92591

PATIENT
  Age: 36 Year
  Sex: Male

DRUGS (3)
  1. CLOZAPINE [Suspect]
     Indication: BIPOLAR DISORDER
  2. LAMOTRIGINE [Suspect]
  3. VALPROIC ACID [Suspect]

REACTIONS (9)
  - SEPSIS [None]
  - GENERAL PHYSICAL CONDITION ABNORMAL [None]
  - PERICARDITIS [None]
  - ILEUS PARALYTIC [None]
  - DIARRHOEA [None]
  - SOMNOLENCE [None]
  - PYREXIA [None]
  - INFLAMMATION [None]
  - RESPIRATORY FAILURE [None]
